FAERS Safety Report 16336677 (Version 1)
Quarter: 2019Q2

REPORT INFORMATION
  Report Type: Spontaneous
  Country: US (occurrence: US)
  Receive Date: 20190521
  Receipt Date: 20190521
  Transmission Date: 20190711
  Serious: No
  Sender: FDA-Public Use
  Company Number: US-BAYER-2019-099454

PATIENT
  Age: 78 Year
  Sex: Male
  Weight: 93 kg

DRUGS (4)
  1. MIRALAX [Suspect]
     Active Substance: POLYETHYLENE GLYCOL 3350
     Indication: GASTROINTESTINAL DISORDER
     Dosage: 17 G
     Route: 048
     Dates: end: 201905
  2. GABAPENTIN. [Concomitant]
     Active Substance: GABAPENTIN
     Indication: FAECES SOFT
  3. CHOLESTEROL [Concomitant]
     Active Substance: CHOLESTEROL
  4. PAIN [Concomitant]
     Active Substance: UNSPECIFIED INGREDIENT

REACTIONS (1)
  - Drug ineffective [Unknown]

NARRATIVE: CASE EVENT DATE: 20190520
